FAERS Safety Report 4850074-9 (Version None)
Quarter: 2005Q4

REPORT INFORMATION
  Report Type: 
  Country: None (occurrence: None)
  Receive Date: 20051123
  Receipt Date: 20050201
  Transmission Date: 20060501
  Serious: Yes (Other)
  Sender: FDA-Public Use
  Company Number: 2004084427

PATIENT
  Age: 54 Year
  Sex: Male

DRUGS (7)
  1. LIPITOR [Suspect]
     Indication: DIABETES MELLITUS NON-INSULIN-DEPENDENT
     Dosage: 20 MG (20 MG, 1 IN 1 D), ORAL
     Route: 048
     Dates: start: 20040801, end: 20041015
  2. ISOPHANE INSULIN [Concomitant]
  3. INSULIN [Concomitant]
  4. LOSARTAN POTASSIUM [Concomitant]
  5. METOLAZONE [Concomitant]
  6. FUROSEMIDE [Concomitant]
  7. POTASSIUM [Concomitant]

REACTIONS (6)
  - ABDOMINAL DISTENSION [None]
  - BLOOD CREATINE PHOSPHOKINASE INCREASED [None]
  - MYALGIA [None]
  - PAIN [None]
  - RHABDOMYOLYSIS [None]
  - WEIGHT INCREASED [None]
